FAERS Safety Report 15864026 (Version 1)
Quarter: 2019Q1

REPORT INFORMATION
  Report Type: Spontaneous
  Country: US (occurrence: US)
  Receive Date: 20190124
  Receipt Date: 20190124
  Transmission Date: 20190417
  Serious: Yes (Death)
  Sender: FDA-Public Use
  Company Number: None

PATIENT
  Age: 47 Year
  Sex: Female
  Weight: 100.35 kg

DRUGS (16)
  1. CAPECITABINE. [Suspect]
     Active Substance: CAPECITABINE
     Indication: BREAST CANCER FEMALE
     Route: 048
     Dates: start: 20180522, end: 20190124
  2. OXYCODONE [Concomitant]
     Active Substance: OXYCODONE
  3. VIMPAT [Concomitant]
     Active Substance: LACOSAMIDE
  4. CALCIUM/VITAMIND [Concomitant]
  5. COLACE [Concomitant]
     Active Substance: DOCUSATE SODIUM
  6. POTASSIUM [Concomitant]
     Active Substance: POTASSIUM
  7. TYKERB [Suspect]
     Active Substance: LAPATINIB DITOSYLATE
     Indication: BREAST CANCER FEMALE
     Route: 048
     Dates: start: 20181004, end: 20181103
  8. AMBIEN [Concomitant]
     Active Substance: ZOLPIDEM TARTRATE
  9. LASIX [Concomitant]
     Active Substance: FUROSEMIDE
  10. ATIVAN [Concomitant]
     Active Substance: LORAZEPAM
  11. IBUPROFEN. [Concomitant]
     Active Substance: IBUPROFEN
  12. PEPCID [Concomitant]
     Active Substance: FAMOTIDINE
  13. PROCRIT [Concomitant]
     Active Substance: ERYTHROPOIETIN
  14. DEXAMETHASONE. [Concomitant]
     Active Substance: DEXAMETHASONE
  15. KEPPRA [Concomitant]
     Active Substance: LEVETIRACETAM
  16. MIRALAX [Concomitant]
     Active Substance: POLYETHYLENE GLYCOL 3350

REACTIONS (1)
  - Death [None]

NARRATIVE: CASE EVENT DATE: 20190124
